FAERS Safety Report 17818650 (Version 1)
Quarter: 2020Q2

REPORT INFORMATION
  Report Type: Spontaneous
  Country: CA (occurrence: CA)
  Receive Date: 20200523
  Receipt Date: 20200523
  Transmission Date: 20200714
  Serious: Yes (Other)
  Sender: FDA-Public Use
  Company Number: CA-ROCHE-2602171

PATIENT
  Age: 63 Year
  Sex: Female

DRUGS (14)
  1. METHYLPREDNISOLONE. [Suspect]
     Active Substance: METHYLPREDNISOLONE
     Indication: PRODUCT USED FOR UNKNOWN INDICATION
     Route: 042
  2. ACETAMINOPHEN. [Concomitant]
     Active Substance: ACETAMINOPHEN
     Route: 048
  3. DILAUDID [Concomitant]
     Active Substance: HYDROMORPHONE HYDROCHLORIDE
  4. DIPHENHYDRAMINE HYDROCHLORIDE. [Concomitant]
     Active Substance: DIPHENHYDRAMINE HYDROCHLORIDE
     Route: 048
  5. SULFASALAZINE. [Concomitant]
     Active Substance: SULFASALAZINE
  6. VITAMIN C [Concomitant]
     Active Substance: ASCORBIC ACID
  7. FOLIC ACID. [Concomitant]
     Active Substance: FOLIC ACID
  8. TECTA [Concomitant]
     Active Substance: PANTOPRAZOLE MAGNESIUM
  9. DOMPERIDONE [Concomitant]
     Active Substance: DOMPERIDONE
  10. RITUXAN [Suspect]
     Active Substance: RITUXIMAB
     Indication: RHEUMATOID ARTHRITIS
     Route: 042
  11. SUCRALFATE. [Concomitant]
     Active Substance: SUCRALFATE
  12. METHOTREXATE. [Concomitant]
     Active Substance: METHOTREXATE
  13. AZITHROMYCIN ANHYDROUS. [Concomitant]
     Active Substance: AZITHROMYCIN ANHYDROUS
  14. SIMVASTATIN. [Concomitant]
     Active Substance: SIMVASTATIN
     Route: 065

REACTIONS (9)
  - Heart rate increased [Unknown]
  - Cystitis [Unknown]
  - Hypertension [Unknown]
  - Arthralgia [Unknown]
  - Oxygen saturation decreased [Unknown]
  - Palpitations [Unknown]
  - Chest pain [Unknown]
  - Dyspepsia [Unknown]
  - Malaise [Unknown]
